FAERS Safety Report 6840352-6 (Version None)
Quarter: 2010Q3

REPORT INFORMATION
  Report Type: 
  Country: None (occurrence: None)
  Receive Date: 20100714
  Receipt Date: 20100705
  Transmission Date: 20110219
  Serious: Yes (Other)
  Sender: FDA-Public Use
  Company Number: JP-PFIZER INC-2010079151

PATIENT
  Age: 69 Year
  Sex: Female

DRUGS (2)
  1. CADUET [Suspect]
     Dosage: UNK
     Route: 048
     Dates: start: 20100302
  2. LEVOFLOXACIN [Suspect]
     Indication: NASOPHARYNGITIS
     Dosage: UNK

REACTIONS (2)
  - BLOOD PRESSURE DECREASED [None]
  - HEPATIC FUNCTION ABNORMAL [None]
